FAERS Safety Report 4493267-5 (Version None)
Quarter: 2004Q4

REPORT INFORMATION
  Report Type: 
  Country: None (occurrence: None)
  Receive Date: 20041102
  Receipt Date: 20041019
  Transmission Date: 20050328
  Serious: Yes (Other)
  Sender: FDA-Public Use
  Company Number: USA040568678

PATIENT
  Age: 81 Year
  Sex: Female

DRUGS (1)
  1. FORTEO [Suspect]
     Indication: OSTEOPOROSIS
     Dates: start: 20040201

REACTIONS (4)
  - CHOROIDAL NEOVASCULARISATION [None]
  - METAMORPHOPSIA [None]
  - PHARMACEUTICAL PRODUCT COMPLAINT [None]
  - RETINAL HAEMORRHAGE [None]
